FAERS Safety Report 12862281 (Version 1)
Quarter: 2016Q4

REPORT INFORMATION
  Report Type: Spontaneous
  Country: FI (occurrence: FI)
  Receive Date: 20161019
  Receipt Date: 20161019
  Transmission Date: 20170207
  Serious: Yes (Other)
  Sender: FDA-Public Use
  Company Number: FI-JNJFOC-20161009548

PATIENT
  Age: 86 Year
  Sex: Female
  Weight: 50 kg

DRUGS (10)
  1. OPAMOX [Suspect]
     Active Substance: OXAZEPAM
     Indication: DEMENTIA ALZHEIMER^S TYPE
     Route: 048
  2. EBIXA [Suspect]
     Active Substance: MEMANTINE HYDROCHLORIDE
     Indication: DEMENTIA ALZHEIMER^S TYPE
     Route: 048
  3. RAMIPRIL HEXAL [Concomitant]
     Active Substance: RAMIPRIL
     Route: 065
  4. KALEORID [Concomitant]
     Active Substance: POTASSIUM CHLORIDE
     Route: 065
  5. RISPERDAL [Suspect]
     Active Substance: RISPERIDONE
     Indication: DEMENTIA ALZHEIMER^S TYPE
     Route: 048
     Dates: start: 2014
  6. CALCICHEW D3 FORTE [Concomitant]
     Active Substance: CALCIUM\CHOLECALCIFEROL
     Route: 065
  7. LIPCUT [Concomitant]
     Active Substance: SIMVASTATIN
     Route: 065
  8. BISOPROLOL RATIOPHARM [Concomitant]
     Active Substance: BISOPROLOL
     Route: 065
  9. PANADOL [Concomitant]
     Active Substance: ACETAMINOPHEN
     Indication: PAIN
     Route: 065
  10. DONEPEZIL ACTAVIS [Concomitant]
     Active Substance: DONEPEZIL HYDROCHLORIDE
     Route: 065

REACTIONS (23)
  - Restlessness [Unknown]
  - Hypertension [Unknown]
  - Speech disorder [Unknown]
  - Fall [Unknown]
  - Abdominal pain [Unknown]
  - Asthenia [None]
  - Altered state of consciousness [Unknown]
  - Confusional state [Unknown]
  - Sleep disorder [Unknown]
  - Arthralgia [Unknown]
  - Blood cholesterol increased [Unknown]
  - Dysphagia [Unknown]
  - Depression [Unknown]
  - Myalgia [Unknown]
  - Emotional poverty [Unknown]
  - Dizziness [Unknown]
  - Toothache [Unknown]
  - Fatigue [Unknown]
  - Headache [Unknown]
  - Urinary incontinence [Unknown]
  - Weight increased [Unknown]
  - Gait disturbance [Unknown]
  - Incorrect drug administration duration [Unknown]
